FAERS Safety Report 8067545-7 (Version None)
Quarter: 2012Q1

REPORT INFORMATION
  Report Type: 
  Country: None (occurrence: None)
  Receive Date: 20120124
  Receipt Date: 20120118
  Transmission Date: 20120608
  Serious: Yes (Other)
  Sender: FDA-Public Use
  Company Number: IT-BRISTOL-MYERS SQUIBB COMPANY-16354920

PATIENT
  Age: 75 Year
  Sex: Female

DRUGS (1)
  1. ENTECAVIR [Suspect]
     Dates: start: 20080101

REACTIONS (1)
  - RENAL FAILURE [None]
